FAERS Safety Report 6600000-7 (Version None)
Quarter: 2010Q1

REPORT INFORMATION
  Report Type: 
  Country: None (occurrence: None)
  Receive Date: 20100217
  Receipt Date: 20100120
  Transmission Date: 20100710
  Serious: Yes (Other)
  Sender: FDA-Public Use
  Company Number: 006514

PATIENT
  Age: 48 Year
  Sex: Female
  Weight: 57 kg

DRUGS (5)
  1. VIMPAT [Suspect]
     Indication: EPILEPSY
     Dosage: (300 MG ORAL)
     Route: 048
     Dates: start: 20091215, end: 20091223
  2. KEPPRA [Suspect]
     Indication: EPILEPSY
     Dosage: (3000 MG ORAL)
     Route: 048
     Dates: start: 20091001, end: 20091201
  3. DIAMOX /00016901/ [Concomitant]
  4. TOPIRAMATE [Concomitant]
  5. JODTHYROX [Concomitant]

REACTIONS (1)
  - GRANULOCYTOPENIA [None]
